FAERS Safety Report 7215598-8 (Version None)
Quarter: 2011Q1

REPORT INFORMATION
  Report Type: 
  Country: None (occurrence: None)
  Receive Date: 20110107
  Receipt Date: 20110105
  Transmission Date: 20110831
  Serious: Yes (Life-Threatening)
  Sender: FDA-Public Use
  Company Number: BE-SANOFI-AVENTIS-2011SA000628

PATIENT

DRUGS (1)
  1. TAXOTERE [Suspect]

REACTIONS (1)
  - THROMBOTIC THROMBOCYTOPENIC PURPURA [None]
